FAERS Safety Report 8118567-9 (Version None)
Quarter: 2012Q1

REPORT INFORMATION
  Report Type: 
  Country: None (occurrence: None)
  Receive Date: 20120207
  Receipt Date: 20120126
  Transmission Date: 20120608
  Serious: Yes (Death, Hospitalization, Other)
  Sender: FDA-Public Use
  Company Number: FR-PFIZER INC-2010181794

PATIENT
  Age: 84 Year
  Sex: Female

DRUGS (9)
  1. LEVOTHYROXINE SODIUM [Suspect]
     Dosage: 75 UG, 1X/DAY
     Route: 048
  2. POLYETHYLENE GLYCOL [Suspect]
     Dosage: 10 G, 2X/DAY
     Route: 048
  3. NEXIUM [Suspect]
     Dosage: 20 MG, 1X/DAY
     Route: 048
  4. PAROXETINE HYDROCHLORIDE [Suspect]
     Dosage: 10 MG, 1X/DAY
     Route: 048
  5. XANAX [Suspect]
     Dosage: 0.25 MG, 1X/DAY
     Route: 048
  6. PRADAXA [Suspect]
     Indication: ARRHYTHMIA
     Dosage: 75 MG, 2X/DAY
     Route: 048
     Dates: start: 20090101, end: 20101115
  7. RAMIPRIL [Suspect]
     Dosage: 5 MG, 2X/DAY
     Route: 048
  8. POTASSIUM CHLORIDE [Suspect]
     Dosage: 1 DF, 2X/DAY
     Route: 048
     Dates: end: 20101115
  9. CORDARONE [Suspect]
     Dosage: 200 MG, 1X/DAY
     Route: 048
     Dates: end: 20101115

REACTIONS (8)
  - ATRIOVENTRICULAR BLOCK COMPLETE [None]
  - GASTROINTESTINAL HAEMORRHAGE [None]
  - OVERDOSE [None]
  - METABOLIC ACIDOSIS [None]
  - FAECAL VOMITING [None]
  - RECTAL HAEMORRHAGE [None]
  - RENAL FAILURE ACUTE [None]
  - PELVIC PAIN [None]
